FAERS Safety Report 7492291-8 (Version None)
Quarter: 2011Q2

REPORT INFORMATION
  Report Type: 
  Country: None (occurrence: None)
  Receive Date: 20110519
  Receipt Date: 20101227
  Transmission Date: 20111010
  Serious: No
  Sender: FDA-Public Use
  Company Number: US-NOVEN-ALL1-2010-06610

PATIENT
  Sex: Male
  Weight: 28.118 kg

DRUGS (2)
  1. FOCALIN [Concomitant]
     Dosage: UNK
     Dates: start: 20100701
  2. DAYTRANA [Suspect]
     Indication: ATTENTION DEFICIT/HYPERACTIVITY DISORDER
     Dosage: UNK MG, 1XDAY: QD
     Route: 062
     Dates: start: 20101001, end: 20101001

REACTIONS (4)
  - NEGATIVISM [None]
  - AGGRESSION [None]
  - HOSTILITY [None]
  - OFF LABEL USE [None]
